FAERS Safety Report 24357583 (Version 1)
Quarter: 2024Q3

REPORT INFORMATION
  Report Type: Spontaneous
  Country: US (occurrence: US)
  Receive Date: 20240924
  Receipt Date: 20240924
  Transmission Date: 20241016
  Serious: Yes (Hospitalization, Other)
  Sender: APELLIS PHARMACEUTICALS
  Company Number: US-APELLIS-2024-APL-0001013

PATIENT

DRUGS (1)
  1. SYFOVRE [Suspect]
     Active Substance: PEGCETACOPLAN
     Indication: Product used for unknown indication
     Dosage: ONE SINGLE DOSE (HALF VOLUME SYFOVRE FOR FIRSTINJECTION)

REACTIONS (7)
  - Eye inflammation [Recovering/Resolving]
  - Visual impairment [Unknown]
  - Anterior chamber disorder [Unknown]
  - Vitritis [Unknown]
  - Retinal haemorrhage [Unknown]
  - Sinusitis [Unknown]
  - Swelling [Unknown]
